FAERS Safety Report 10174663 (Version 1)
Quarter: 2014Q2

REPORT INFORMATION
  Report Type: Spontaneous
  Country: US (occurrence: US)
  Receive Date: 20140515
  Receipt Date: 20140515
  Transmission Date: 20141212
  Serious: Yes (Hospitalization)
  Sender: FDA-Public Use
  Company Number: US-GLAXOSMITHKLINE-A1073353A

PATIENT
  Age: 71 Year
  Sex: Female

DRUGS (2)
  1. ZOFRAN [Suspect]
     Indication: NAUSEA
     Dosage: 8MG PER DAY
     Route: 048
     Dates: start: 201002
  2. UNKNOWN [Concomitant]

REACTIONS (4)
  - Carotid artery occlusion [Recovered/Resolved]
  - Pancreatitis [Recovered/Resolved]
  - Carotid artery stent insertion [Recovered/Resolved]
  - Stent placement [Recovered/Resolved]
